FAERS Safety Report 4815798-8 (Version None)
Quarter: 2005Q4

REPORT INFORMATION
  Report Type: 
  Country: None (occurrence: None)
  Receive Date: 20051031
  Receipt Date: 20051013
  Transmission Date: 20060501
  Serious: Yes (Hospitalization)
  Sender: FDA-Public Use
  Company Number: DE-GLAXOSMITHKLINE-D0047737A

PATIENT
  Age: 38 Year
  Sex: Male
  Weight: 75 kg

DRUGS (4)
  1. KIVEXA [Suspect]
     Indication: HIV INFECTION
     Dosage: 900MG PER DAY
     Route: 048
     Dates: start: 20050902, end: 20050916
  2. VIRAMUNE [Concomitant]
     Indication: HIV INFECTION
     Dosage: 200MG TWICE PER DAY
     Route: 048
     Dates: start: 20050902
  3. DOXYCYCLIN [Concomitant]
     Indication: CHLAMYDIAL INFECTION
     Dosage: 100MG TWICE PER DAY
     Route: 048
  4. MAVID [Concomitant]
     Indication: CHLAMYDIAL INFECTION
     Dosage: 500MG TWICE PER DAY
     Route: 048
     Dates: start: 20050920, end: 20051001

REACTIONS (6)
  - ENCEPHALITIS [None]
  - ENCEPHALOPATHY [None]
  - GRAND MAL CONVULSION [None]
  - HEADACHE [None]
  - HERPES VIRUS INFECTION [None]
  - RASH [None]
